FAERS Safety Report 19832113 (Version 3)
Quarter: 2022Q2

REPORT INFORMATION
  Report Type: Spontaneous
  Country: US (occurrence: US)
  Receive Date: 20210915
  Receipt Date: 20220630
  Transmission Date: 20220720
  Serious: No
  Sender: FDA-Public Use
  Company Number: US-SA-SAC20210914001299

PATIENT
  Age: 59 Year
  Sex: Male

DRUGS (1)
  1. DUPIXENT [Suspect]
     Active Substance: DUPILUMAB
     Indication: Nasal polyps
     Dosage: 300 MG, QOW
     Route: 058
     Dates: start: 20210823

REACTIONS (7)
  - Injection site pain [Recovered/Resolved]
  - Arthralgia [Unknown]
  - Myalgia [Unknown]
  - Joint stiffness [Unknown]
  - COVID-19 [Unknown]
  - Injection site pain [Unknown]
  - Product use in unapproved indication [Unknown]

NARRATIVE: CASE EVENT DATE: 20210101
